FAERS Safety Report 25085918 (Version 2)
Quarter: 2025Q2

REPORT INFORMATION
  Report Type: Report from Study
  Country: CA (occurrence: CA)
  Receive Date: 20250317
  Receipt Date: 20250520
  Transmission Date: 20250717
  Serious: Yes (Other)
  Sender: TAKEDA
  Company Number: CA-TAKEDA-2022TUS063162

PATIENT
  Sex: Female

DRUGS (5)
  1. VEDOLIZUMAB [Suspect]
     Active Substance: VEDOLIZUMAB
     Indication: Colitis ulcerative
  2. VEDOLIZUMAB [Suspect]
     Active Substance: VEDOLIZUMAB
  3. VEDOLIZUMAB [Suspect]
     Active Substance: VEDOLIZUMAB
  4. ADVIL [Suspect]
     Active Substance: IBUPROFEN
     Indication: Product used for unknown indication
  5. Salofalk [Concomitant]

REACTIONS (9)
  - Hepatic enzyme increased [Recovering/Resolving]
  - Splenomegaly [Unknown]
  - Frequent bowel movements [Unknown]
  - Illness [Unknown]
  - Liver function test increased [Unknown]
  - Abdominal tenderness [Unknown]
  - Abdominal pain [Unknown]
  - Abdominal distension [Unknown]
  - Gastroenteritis viral [Unknown]
